FAERS Safety Report 6735201-0 (Version None)
Quarter: 2010Q2

REPORT INFORMATION
  Report Type: 
  Country: None (occurrence: None)
  Receive Date: 20100519
  Receipt Date: 20100519
  Transmission Date: 20101027
  Serious: Yes (Disabling)
  Sender: FDA-Public Use
  Company Number: None

PATIENT
  Age: 58 Year
  Sex: Female
  Weight: 58.514 kg

DRUGS (1)
  1. TRIAMCINOLONE ACETONIDE [Suspect]
     Indication: RASH
     Dosage: 1 INJ

REACTIONS (4)
  - MUSCLE ATROPHY [None]
  - MUSCLE SPASMS [None]
  - SCIATICA [None]
  - SKIN DISORDER [None]
